FAERS Safety Report 22389895 (Version 2)
Quarter: 2023Q2

REPORT INFORMATION
  Report Type: Report from Study
  Country: CN (occurrence: None)
  Receive Date: 20230531
  Receipt Date: 20230606
  Transmission Date: 20230722
  Serious: Yes (Life-Threatening, Hospitalization)
  Sender: FDA-Public Use
  Company Number: CN-ROCHE-3357982

PATIENT
  Age: 50 Year
  Sex: Male
  Weight: 61.8 kg

DRUGS (36)
  1. GLOFITAMAB [Suspect]
     Active Substance: GLOFITAMAB
     Indication: Diffuse large B-cell lymphoma recurrent
     Dosage: ON 08/JUL/2021, THE PATIENT WAS RECEIVED MOST RECENT DOSE OF GLOFITAMAB AT 2.5 MG PRIOR TO AE/SAE ON
     Route: 042
     Dates: start: 20210611
  2. OBINUTUZUMAB [Suspect]
     Active Substance: OBINUTUZUMAB
     Indication: Diffuse large B-cell lymphoma recurrent
     Dosage: ON THE SAME DAY, THE PATIENT WAS RECEIVED MOST RECENT DOSE OF OBINUTUZUMAB AT 1000 MG PRIOR TO AE/SA
     Route: 042
     Dates: start: 20210604
  3. TOCILIZUMAB [Suspect]
     Active Substance: TOCILIZUMAB
     Indication: Diffuse large B-cell lymphoma recurrent
     Dosage: ON THE SAME DAY, THE PATIENT WAS RECEIVED MOST RECENT DOSE OF TOCILIZUMAB AT 1000 MG PRIOR TO AE/SAE
     Route: 042
     Dates: start: 20210709
  4. SOMATOSTATIN [Concomitant]
     Active Substance: SOMATOSTATIN
     Indication: Pancreatitis
     Route: 065
     Dates: start: 20210709, end: 20210804
  5. GLYCERINE ENEMA [Concomitant]
     Route: 061
     Dates: start: 20210711, end: 20210806
  6. GLYCERINE ENEMA [Concomitant]
     Route: 061
     Dates: start: 20210727, end: 20210727
  7. GLYCERINE ENEMA [Concomitant]
     Route: 061
     Dates: start: 20210803, end: 20210803
  8. PALONOSETRON HYDROCHLORIDE [Concomitant]
     Active Substance: PALONOSETRON HYDROCHLORIDE
     Route: 042
     Dates: start: 20210729, end: 20210730
  9. LANSOPRAZOLE [Concomitant]
     Active Substance: LANSOPRAZOLE
     Route: 042
     Dates: start: 20210729, end: 20210730
  10. DIPHENHYDRAMINE [Concomitant]
     Active Substance: DIPHENHYDRAMINE
     Route: 030
     Dates: start: 20210729, end: 20210730
  11. INSULIN NOS [Concomitant]
     Active Substance: INSULIN NOS
     Route: 042
     Dates: start: 20210709, end: 20210806
  12. INSULIN NOS [Concomitant]
     Active Substance: INSULIN NOS
     Route: 058
     Dates: start: 20210718, end: 20210806
  13. DEXTROSE [Concomitant]
     Active Substance: DEXTROSE\DEXTROSE MONOHYDRATE
     Route: 042
     Dates: start: 20210709, end: 20210806
  14. CALCIUM GLUCONATE [Concomitant]
     Active Substance: CALCIUM GLUCONATE
     Route: 042
     Dates: start: 20210709, end: 20210806
  15. SODIUM CHLORIDE [Concomitant]
     Active Substance: SODIUM CHLORIDE
     Route: 042
     Dates: start: 20210709, end: 20210806
  16. POTASSIUM CHLORIDE [Concomitant]
     Active Substance: POTASSIUM CHLORIDE
     Route: 042
     Dates: start: 20210709, end: 20210806
  17. COMPOUND AMINO ACID INJECTION (3AA) [Concomitant]
     Route: 042
     Dates: start: 20210709, end: 20210806
  18. EGG PHOSPHOLIPIDS\GLYCERIN\SOYBEAN OIL [Concomitant]
     Active Substance: EGG PHOSPHOLIPIDS\GLYCERIN\SOYBEAN OIL
     Route: 042
     Dates: start: 20210709, end: 20210806
  19. ALBUMIN HUMAN [Concomitant]
     Active Substance: ALBUMIN HUMAN
     Indication: Hypoalbuminaemia
     Route: 042
     Dates: start: 20210709, end: 20210806
  20. SODIUM CHLORIDE [Concomitant]
     Active Substance: SODIUM CHLORIDE
     Route: 042
     Dates: start: 20210709, end: 20210806
  21. OXYGEN [Concomitant]
     Active Substance: OXYGEN
     Indication: Hypoxia
     Route: 055
     Dates: start: 20210709, end: 20210803
  22. IMIPENEM AND CILASTATIN SODIUM [Concomitant]
     Active Substance: CILASTATIN SODIUM\IMIPENEM
     Route: 042
     Dates: start: 20210709, end: 20210803
  23. IMIPENEM AND CILASTATIN SODIUM [Concomitant]
     Active Substance: CILASTATIN SODIUM\IMIPENEM
     Route: 042
     Dates: start: 20210827, end: 20210827
  24. IMIPENEM AND CILASTATIN SODIUM [Concomitant]
     Active Substance: CILASTATIN SODIUM\IMIPENEM
     Route: 042
     Dates: start: 20210814, end: 20210820
  25. FUROSEMIDE [Concomitant]
     Active Substance: FUROSEMIDE
     Route: 042
     Dates: start: 20210711, end: 20210803
  26. ALUMINUM MAGNESIUM CARBONATE TABLETS [Concomitant]
     Route: 048
     Dates: start: 20210721, end: 20210806
  27. DEXAMETHASONE [Concomitant]
     Active Substance: DEXAMETHASONE
     Route: 042
     Dates: start: 20210728, end: 20210729
  28. DEXAMETHASONE [Concomitant]
     Active Substance: DEXAMETHASONE
     Route: 042
     Dates: start: 20210723, end: 20210806
  29. DEXAMETHASONE [Concomitant]
     Active Substance: DEXAMETHASONE
     Route: 042
     Dates: start: 20210804, end: 20210806
  30. CODEINE PHOSPHATE AND PLATYCODON TABLETS [Concomitant]
     Indication: Cough
     Route: 048
     Dates: start: 20210729, end: 20210731
  31. BENDAMUSTINE HYDROCHLORIDE [Concomitant]
     Active Substance: BENDAMUSTINE HYDROCHLORIDE
     Indication: Lymphoma
     Route: 042
     Dates: start: 20210729, end: 20210731
  32. RECOMBINANT HUMAN GRANULOCYTE STIMULATING FACTOR (UNK INGREDIENTS) [Concomitant]
     Indication: White blood cell count decreased
     Route: 058
     Dates: start: 20210731, end: 20210731
  33. LEVOTHYROXINE SODIUM [Concomitant]
     Active Substance: LEVOTHYROXINE SODIUM
     Indication: Hypothyroidism
     Route: 048
     Dates: start: 20210721, end: 20210806
  34. PARECOXIB SODIUM [Concomitant]
     Active Substance: PARECOXIB SODIUM
     Indication: Abdominal pain
     Route: 042
     Dates: start: 20210717, end: 20210806
  35. CEFOPERAZONE\SULBACTAM [Concomitant]
     Active Substance: CEFOPERAZONE\SULBACTAM
     Route: 042
     Dates: start: 20210803, end: 20210806
  36. BENDAMUSTINE [Concomitant]
     Active Substance: BENDAMUSTINE
     Dates: start: 20210729, end: 20210730

REACTIONS (2)
  - Immune-mediated myocarditis [Not Recovered/Not Resolved]
  - Immune-mediated lung disease [Not Recovered/Not Resolved]

NARRATIVE: CASE EVENT DATE: 20210709
